FAERS Safety Report 9389811 (Version 2)
Quarter: 2013Q4

REPORT INFORMATION
  Report Type: Spontaneous
  Country: US (occurrence: US)
  Receive Date: 20130708
  Receipt Date: 20131106
  Transmission Date: 20140711
  Serious: No
  Sender: FDA-Public Use
  Company Number: US-AMGEN-USASP2013045947

PATIENT
  Age: 75 Year
  Sex: Female

DRUGS (2)
  1. ENBREL [Suspect]
     Indication: RHEUMATOID ARTHRITIS
     Dosage: 25 MG, 2 TIMES/WK
     Route: 065
     Dates: start: 20040601
  2. ENBREL [Suspect]
     Dosage: UNK
     Route: 065

REACTIONS (5)
  - Musculoskeletal discomfort [Not Recovered/Not Resolved]
  - Mobility decreased [Not Recovered/Not Resolved]
  - Arthropathy [Not Recovered/Not Resolved]
  - Injection site pain [Recovered/Resolved]
  - Injection site bruising [Not Recovered/Not Resolved]
